FAERS Safety Report 10256268 (Version 1)
Quarter: 2014Q2

REPORT INFORMATION
  Report Type: Spontaneous
  Country: US (occurrence: US)
  Receive Date: 20140624
  Receipt Date: 20140624
  Transmission Date: 20141212
  Serious: No
  Sender: FDA-Public Use
  Company Number: US-ZOGENIX, INC.-2012ZX000120

PATIENT
  Sex: Female
  Weight: 59.02 kg

DRUGS (7)
  1. SUMAVEL DOSEPRO [Suspect]
     Indication: MIGRAINE
  2. SUMAVEL DOSEPRO [Suspect]
  3. SUMATRIPTAN [Concomitant]
     Indication: MIGRAINE
  4. RELPAX [Concomitant]
     Indication: MIGRAINE
     Route: 048
  5. TREXIMET [Concomitant]
     Indication: MIGRAINE
     Route: 048
  6. PRISTIQ [Concomitant]
     Indication: DEPRESSION
     Route: 048
  7. PRAVASTATIN [Concomitant]
     Indication: BLOOD CHOLESTEROL
     Route: 048

REACTIONS (6)
  - Injection site extravasation [Recovered/Resolved]
  - Aura [Unknown]
  - Device malfunction [Recovered/Resolved]
  - Feeling abnormal [Recovered/Resolved]
  - Injection site erythema [Recovered/Resolved]
  - Incorrect dose administered by device [Recovered/Resolved]
